FAERS Safety Report 4331667-4 (Version None)
Quarter: 2004Q2

REPORT INFORMATION
  Report Type: 
  Country: None (occurrence: None)
  Receive Date: 20040401
  Receipt Date: 20040401
  Transmission Date: 20050107
  Serious: No
  Sender: FDA-Public Use
  Company Number: None

PATIENT
  Age: 47 Year
  Sex: Female
  Weight: 83.9154 kg

DRUGS (12)
  1. ZANAFLEX [Suspect]
     Indication: MUSCLE SPASMS
     Dosage: 4 MG PO TID
     Route: 048
     Dates: start: 20040201, end: 20040301
  2. PREDNISONE [Concomitant]
  3. SYNTHROID [Concomitant]
  4. PREMARIN [Concomitant]
  5. NEXIUM [Concomitant]
  6. LIPITOR [Concomitant]
  7. TOPAMAX [Concomitant]
  8. FLUOXETINE [Concomitant]
  9. TOPROL-XL [Concomitant]
  10. WELLBUTRIN [Concomitant]
  11. FLEXERIL [Concomitant]
  12. DURAGESIC [Concomitant]

REACTIONS (3)
  - DEAFNESS BILATERAL [None]
  - DEAFNESS NEUROSENSORY [None]
  - TINNITUS [None]
